FAERS Safety Report 18340056 (Version 2)
Quarter: 2023Q4

REPORT INFORMATION
  Report Type: Other
  Country: GB (occurrence: None)
  Receive Date: 20201002
  Receipt Date: 20231201
  Transmission Date: 20240109
  Serious: Yes (Hospitalization, Disabling, Other)
  Sender: FDA-Public Use
  Company Number: GB-SAPTALIS PHARMACEUTICALS,LLC-000003

PATIENT
  Age: 17 Year
  Sex: Female

DRUGS (3)
  1. KENALOG [Suspect]
     Active Substance: TRIAMCINOLONE ACETONIDE
     Indication: Coccydynia
     Dosage: 1 ML OF 40 MG
     Route: 042
  2. MIDAZOLAM [Suspect]
     Active Substance: MIDAZOLAM
     Indication: Coccydynia
     Route: 042
  3. BUPIVACAINE [Suspect]
     Active Substance: BUPIVACAINE
     Indication: Coccydynia
     Dosage: FOUR MILLILITRES OF 0.5%
     Route: 042

REACTIONS (11)
  - Infarction [Not Recovered/Not Resolved]
  - Musculoskeletal disorder [Not Recovered/Not Resolved]
  - Myoclonus [Not Recovered/Not Resolved]
  - Paraesthesia [Not Recovered/Not Resolved]
  - Loss of proprioception [Recovered/Resolved]
  - Reflexes abnormal [Not Recovered/Not Resolved]
  - Pain [Not Recovered/Not Resolved]
  - Paraesthesia [Not Recovered/Not Resolved]
  - Asthenia [Not Recovered/Not Resolved]
  - Muscular weakness [Recovered/Resolved]
  - Limb discomfort [Not Recovered/Not Resolved]
